FAERS Safety Report 10229449 (Version 2)
Quarter: 2014Q2

REPORT INFORMATION
  Report Type: Spontaneous
  Country: GB (occurrence: GB)
  Receive Date: 20140611
  Receipt Date: 20140611
  Transmission Date: 20141212
  Serious: Yes (Other)
  Sender: FDA-Public Use
  Company Number: GB-RANBAXY-2014RR-81408

PATIENT
  Age: 40 Year
  Sex: Male

DRUGS (4)
  1. DICLOFENAC [Suspect]
     Indication: PSORIATIC ARTHROPATHY
     Dosage: 50 MG, TID
     Route: 065
  2. DICLOFENAC [Suspect]
     Indication: PSORIATIC ARTHROPATHY
     Dosage: UNK
     Route: 065
  3. METHOTREXATE [Suspect]
     Indication: PSORIATIC ARTHROPATHY
     Dosage: UNK
     Route: 065
  4. PARACETAMOL/CODEINE [Suspect]
     Indication: PSORIATIC ARTHROPATHY
     Dosage: UNK
     Route: 065

REACTIONS (3)
  - Pseudoporphyria [Recovering/Resolving]
  - Condition aggravated [Unknown]
  - Liver function test abnormal [None]
